FAERS Safety Report 10495103 (Version 3)
Quarter: 2015Q2

REPORT INFORMATION
  Report Type: Spontaneous
  Country: US (occurrence: None)
  Receive Date: 20140815
  Receipt Date: 20150528
  Transmission Date: 20150821
  Serious: Yes (Life-Threatening, Hospitalization, Other)
  Sender: FDA-Public Use
  Company Number: ADR-2014-00277

PATIENT
  Age: 23 Year
  Sex: Male

DRUGS (4)
  1. BACLOFEN INTRATHECAL 2000 MCG/ML (CANGENE) [Suspect]
     Active Substance: BACLOFEN
     Indication: MUSCLE SPASTICITY
     Dosage: 350 MCG/DAY
  2. PREVACID [Suspect]
     Active Substance: LANSOPRAZOLE
     Dosage: DOSE, FREQUENCY AND ROUTE NOT SPECIFIED
  3. PEG3350 [Suspect]
     Active Substance: POLYETHYLENE GLYCOL 3350
     Dosage: DOSE, FREQUENCY AND ROUTE NOT SPECIFIED
  4. LAMOTRIGINE. [Suspect]
     Active Substance: LAMOTRIGINE

REACTIONS (14)
  - Implant site infection [None]
  - Wound [None]
  - Implant site erosion [None]
  - Implant site erythema [None]
  - Wound drainage [None]
  - Staphylococcal infection [None]
  - Implant site vesicles [None]
  - Laboratory test abnormal [None]
  - Skin discolouration [None]
  - Contusion [None]
  - Abdominal distension [None]
  - C-reactive protein abnormal [None]
  - Capillary disorder [None]
  - Full blood count abnormal [None]
